FAERS Safety Report 9003103 (Version 1)
Quarter: 2013Q1

REPORT INFORMATION
  Report Type: Report from Study
  Country: JP (occurrence: JP)
  Receive Date: 20130108
  Receipt Date: 20130108
  Transmission Date: 20140127
  Serious: Yes (Hospitalization)
  Sender: FDA-Public Use
  Company Number: JP-AMGEN-JPNCT2012084365

PATIENT
  Age: 67 Year
  Sex: Male
  Weight: 72 kg

DRUGS (9)
  1. DARBEPOETIN ALFA [Suspect]
     Indication: NEPHROGENIC ANAEMIA
     Dosage: 60 MUG, UNK
     Route: 058
     Dates: start: 20111026
  2. BAYASPIRIN [Concomitant]
     Dosage: UNK
     Route: 048
  3. ARTIST [Concomitant]
     Dosage: UNK
     Route: 048
  4. LIPITOR [Concomitant]
     Dosage: UNK
     Route: 048
  5. RASILEZ [Concomitant]
     Dosage: UNK
     Route: 048
  6. LASIX [Concomitant]
     Dosage: UNK
     Route: 048
  7. SENNARIDE [Concomitant]
     Dosage: UNK
     Route: 048
  8. CALTAN [Concomitant]
     Dosage: UNK
     Route: 048
  9. MYSLEE [Concomitant]
     Dosage: UNK
     Route: 048

REACTIONS (1)
  - Cardiac failure congestive [Recovering/Resolving]
